FAERS Safety Report 9667637 (Version 1)
Quarter: 2013Q4

REPORT INFORMATION
  Report Type: Spontaneous
  Country: US (occurrence: US)
  Receive Date: 20131101
  Receipt Date: 20131101
  Transmission Date: 20140711
  Serious: No
  Sender: FDA-Public Use
  Company Number: US-SAVIENT-2012S1000069

PATIENT
  Age: 67 Year
  Sex: Male
  Weight: 88.45 kg

DRUGS (9)
  1. KRYSTEXXA INJECTION [Suspect]
     Indication: GOUT
     Route: 042
     Dates: start: 20120620, end: 20120705
  2. TYLENOL  /00020001/ [Concomitant]
     Indication: PREMEDICATION
     Route: 048
     Dates: start: 20120620, end: 20120705
  3. ALLEGRA [Concomitant]
     Indication: PREMEDICATION
     Route: 048
     Dates: start: 20120620, end: 20120705
  4. PREDNISONE [Concomitant]
     Indication: INFLAMMATION
  5. NEXIUM [Concomitant]
     Indication: GASTROOESOPHAGEAL REFLUX DISEASE
     Dates: start: 2010
  6. METOPROLOL [Concomitant]
     Indication: PRODUCT USED FOR UNKNOWN INDICATION
     Dates: start: 2007
  7. LISINOPRIL [Concomitant]
     Indication: BLOOD PRESSURE ABNORMAL
     Dates: end: 201206
  8. SYMBICORT [Concomitant]
     Indication: DYSPNOEA
     Dates: start: 201205
  9. VENTOLINE /00139501/ [Concomitant]
     Indication: DYSPNOEA
     Dates: start: 201205

REACTIONS (2)
  - Gait disturbance [Not Recovered/Not Resolved]
  - Gout [Not Recovered/Not Resolved]
